FAERS Safety Report 15465341 (Version 3)
Quarter: 2018Q4

REPORT INFORMATION
  Report Type: Spontaneous
  Country: US (occurrence: US)
  Receive Date: 20181004
  Receipt Date: 20181127
  Transmission Date: 20190204
  Serious: Yes (Other)
  Sender: FDA-Public Use
  Company Number: US-ASTRAZENECA-2018SF25240

PATIENT
  Sex: Female
  Weight: 86.2 kg

DRUGS (2)
  1. TUDORZA PRESSAIR [Suspect]
     Active Substance: ACLIDINIUM BROMIDE
     Indication: ASTHMA
     Route: 055
  2. ADVAIR HFA [Concomitant]
     Active Substance: FLUTICASONE PROPIONATE\SALMETEROL XINAFOATE
     Indication: ASTHMA
     Dosage: 500/50 MCG TWO TIMES A DAY
     Route: 055

REACTIONS (8)
  - Lung neoplasm malignant [Not Recovered/Not Resolved]
  - Macular degeneration [Not Recovered/Not Resolved]
  - Device issue [Unknown]
  - Arthritis [Not Recovered/Not Resolved]
  - Product dose omission [Not Recovered/Not Resolved]
  - Device failure [Unknown]
  - Dyspnoea [Not Recovered/Not Resolved]
  - Hypersensitivity [Recovering/Resolving]
